FAERS Safety Report 4853673-3 (Version None)
Quarter: 2005Q4

REPORT INFORMATION
  Report Type: 
  Country: None (occurrence: None)
  Receive Date: 20051214
  Receipt Date: 20051205
  Transmission Date: 20060501
  Serious: Yes (Life-Threatening, Hospitalization)
  Sender: FDA-Public Use
  Company Number: US-BRISTOL-MYERS SQUIBB COMPANY-13204052

PATIENT
  Age: 56 Year
  Sex: Male

DRUGS (3)
  1. BUSPIRONE HCL [Suspect]
     Indication: DEPRESSION
     Route: 048
  2. OLANZAPINE [Interacting]
     Indication: DEPRESSION
  3. FLUOXETINE [Interacting]
     Indication: DEPRESSION
     Dosage: INITIATED AT 20MG TWICE DAILY FOR 3 WEEKS; INCREASED TO 40MG IN THE MORNING AND 20MG AT NIGHT

REACTIONS (3)
  - DRUG INTERACTION [None]
  - INAPPROPRIATE ANTIDIURETIC HORMONE SECRETION [None]
  - SEROTONIN SYNDROME [None]
